FAERS Safety Report 9059071 (Version 2)
Quarter: 2014Q1

REPORT INFORMATION
  Report Type: Spontaneous
  Country: US (occurrence: US)
  Receive Date: 20130211
  Receipt Date: 20140224
  Transmission Date: 20141002
  Serious: No
  Sender: FDA-Public Use
  Company Number: US-BRISTOL-MYERS SQUIBB COMPANY-16723140

PATIENT
  Age: 69 Year
  Sex: Female
  Weight: 86.17 kg

DRUGS (7)
  1. METFORMIN HCL [Suspect]
     Indication: DIABETES MELLITUS
     Dosage: 2/DAY ON FEB2010 CHANGED AS 1TAB DAILY AND 2 TABS AT BEDTIME THEN CHANGED 500 MG(2/DAY) JUL2012
     Route: 048
     Dates: start: 2009, end: 201111
  2. GLIMEPIRIDE [Suspect]
     Indication: DIABETES MELLITUS
     Dates: end: 201111
  3. SYNTHROID [Concomitant]
  4. MAGNESIUM [Concomitant]
  5. CITRACAL + D [Concomitant]
  6. VITAMIN B12 [Concomitant]
  7. FLAXSEED [Concomitant]

REACTIONS (15)
  - Blood glucose fluctuation [Recovered/Resolved]
  - Amnesia [Recovered/Resolved]
  - Weight increased [Recovered/Resolved]
  - Fluid retention [Recovered/Resolved]
  - Abdominal discomfort [Recovered/Resolved]
  - Arthralgia [Recovered/Resolved]
  - Fall [Recovered/Resolved]
  - Dizziness [Recovered/Resolved]
  - Cyst [Unknown]
  - Nausea [Unknown]
  - Dizziness [Unknown]
  - Hunger [Unknown]
  - Altered state of consciousness [Recovered/Resolved]
  - Drug ineffective [Unknown]
  - Contusion [Unknown]
